FAERS Safety Report 9011531 (Version 4)
Quarter: 2013Q3

REPORT INFORMATION
  Report Type: Spontaneous
  Country: US (occurrence: US)
  Receive Date: 20130108
  Receipt Date: 20130902
  Transmission Date: 20140515
  Serious: Yes (Other)
  Sender: FDA-Public Use
  Company Number: US-JNJFOC-20130101104

PATIENT
  Sex: Male

DRUGS (5)
  1. CONCERTA [Suspect]
     Indication: DISTURBANCE IN ATTENTION
     Dosage: THREE OR THREE AND HALF YEARS AGO
     Route: 048
     Dates: end: 20130129
  2. CONCERTA [Suspect]
     Indication: FATIGUE
     Dosage: THREE OR THREE AND HALF YEARS AGO
     Route: 048
     Dates: end: 20130129
  3. ZOLOFT [Suspect]
     Indication: DEPRESSION
     Route: 065
  4. KLONOPIN [Suspect]
     Indication: ANXIETY
     Dosage: FOUR YEARS AGO, FOUR TIMES A DAY
     Route: 065
  5. WELLBUTRIN [Suspect]
     Indication: DEPRESSION
     Route: 065

REACTIONS (3)
  - Peyronie^s disease [Unknown]
  - Hypogonadism [Unknown]
  - Pituitary tumour [Unknown]
